FAERS Safety Report 9313107 (Version 2)
Quarter: 2013Q3

REPORT INFORMATION
  Report Type: Spontaneous
  Country: DE (occurrence: DE)
  Receive Date: 20130528
  Receipt Date: 20130802
  Transmission Date: 20140515
  Serious: Yes (Hospitalization)
  Sender: FDA-Public Use
  Company Number: PHHY2013DE052330

PATIENT
  Age: 50 Year
  Sex: Female

DRUGS (4)
  1. CERTICAN [Suspect]
     Indication: TRANSPLANT
     Dosage: UNK
     Dates: start: 201211
  2. MUMPS AND RUBELLA VACCINE [Concomitant]
  3. MEASLES VACCINE W/MUMPS VACCINE [Concomitant]
  4. PERTUSSIS VACCINE ^SSI^ [Concomitant]

REACTIONS (2)
  - Skin discolouration [Not Recovered/Not Resolved]
  - Hypoaesthesia [Not Recovered/Not Resolved]
